FAERS Safety Report 16866781 (Version 2)
Quarter: 2019Q4

REPORT INFORMATION
  Report Type: Spontaneous
  Country: ES (occurrence: ES)
  Receive Date: 20190930
  Receipt Date: 20191007
  Transmission Date: 20200122
  Serious: Yes (Other)
  Sender: FDA-Public Use
  Company Number: ES-ALK-ABELLO A/S-2019AA003263

PATIENT

DRUGS (5)
  1. PHARMALGEN 801 [Suspect]
     Active Substance: APIS MELLIFERA
     Dosage: 20 MILLIGRAM
     Dates: start: 201908, end: 201909
  2. PHARMALGEN 801 [Suspect]
     Active Substance: APIS MELLIFERA
     Dosage: 10 MILLIGRAM
     Dates: start: 201908, end: 201909
  3. PHARMALGEN 801 [Suspect]
     Active Substance: APIS MELLIFERA
     Dosage: 20 MILLIGRAM
     Dates: start: 201908, end: 201909
  4. PHARMALGEN 801 [Suspect]
     Active Substance: APIS MELLIFERA
     Indication: PRODUCT USED FOR UNKNOWN INDICATION
     Dosage: 5 MILLIGRAM
     Dates: start: 201908, end: 201909
  5. PHARMALGEN 801 [Suspect]
     Active Substance: APIS MELLIFERA
     Dosage: 10 MILLIGRAM
     Dates: start: 201908, end: 201909

REACTIONS (12)
  - Inappropriate schedule of product administration [Recovered/Resolved]
  - Rhinorrhoea [Recovered/Resolved]
  - Cough [Recovered/Resolved]
  - Throat clearing [Recovered/Resolved]
  - Contraindicated product administered [Recovered/Resolved]
  - Pruritus [Recovered/Resolved]
  - Secretion discharge [Recovered/Resolved]
  - Off label use [Recovered/Resolved]
  - Rhinitis [Recovered/Resolved]
  - Discomfort [Unknown]
  - Rash [Recovered/Resolved]
  - Nasal congestion [Recovered/Resolved]
